FAERS Safety Report 8055192-2 (Version None)
Quarter: 2012Q1

REPORT INFORMATION
  Report Type: 
  Country: None (occurrence: None)
  Receive Date: 20120119
  Receipt Date: 20120116
  Transmission Date: 20120608
  Serious: Yes (Death)
  Sender: FDA-Public Use
  Company Number: PHHY2011CA81995

PATIENT
  Sex: Male
  Weight: 86 kg

DRUGS (1)
  1. RIVASTIGMINE [Suspect]
     Indication: DEMENTIA ALZHEIMER'S TYPE
     Dosage: 9.5 MG (10 CM PATCH)
     Route: 062
     Dates: start: 20100413

REACTIONS (1)
  - DEATH [None]
